FAERS Safety Report 21018049 (Version 1)
Quarter: 2022Q2

REPORT INFORMATION
  Report Type: Spontaneous
  Country: US (occurrence: None)
  Receive Date: 20220627
  Receipt Date: 20220627
  Transmission Date: 20220721
  Serious: Yes (Hospitalization)
  Sender: FDA-Public Use
  Company Number: None

PATIENT
  Age: 56 Year
  Sex: Female

DRUGS (1)
  1. COSENTYX [Suspect]
     Active Substance: SECUKINUMAB
     Dosage: 150MG OTHER SUBCUTANEOUS?
     Route: 058
     Dates: start: 2021

REACTIONS (3)
  - Infection [None]
  - Gastric disorder [None]
  - White blood cell count decreased [None]

NARRATIVE: CASE EVENT DATE: 20220627
